FAERS Safety Report 9932484 (Version 1)
Quarter: 2014Q1

REPORT INFORMATION
  Report Type: Spontaneous
  Country: US (occurrence: US)
  Receive Date: 20140228
  Receipt Date: 20140228
  Transmission Date: 20141002
  Serious: No
  Sender: FDA-Public Use
  Company Number: US-GLAXOSMITHKLINE-A1017042A

PATIENT
  Sex: Female

DRUGS (7)
  1. LAMICTAL [Suspect]
     Indication: AFFECTIVE DISORDER
     Dosage: 300MG TWICE PER DAY
     Route: 048
     Dates: end: 201303
  2. EFFEXOR [Concomitant]
  3. LEVOTHYROXINE [Concomitant]
  4. ZOLPIDEM [Concomitant]
  5. SEROQUEL [Concomitant]
  6. LEXAPRO [Concomitant]
  7. ZOLOFT [Concomitant]

REACTIONS (4)
  - Aphthous stomatitis [Recovered/Resolved]
  - Tongue ulceration [Unknown]
  - Dry mouth [Unknown]
  - Skin ulcer [Unknown]
